FAERS Safety Report 14278126 (Version 1)
Quarter: 2017Q4

REPORT INFORMATION
  Report Type: Spontaneous
  Country: JP (occurrence: JP)
  Receive Date: 20171211
  Receipt Date: 20171211
  Transmission Date: 20180321
  Serious: Yes (Other)
  Sender: FDA-Public Use
  Company Number: JP-OTSUKA-BJ20114834

PATIENT
  Age: 0 Day
  Sex: Male
  Weight: 2.15 kg

DRUGS (6)
  1. RITODRINE [Concomitant]
     Active Substance: RITODRINE
     Indication: THREATENED LABOUR
     Dosage: 15 MG, QD
     Route: 064
     Dates: start: 20081122, end: 20090112
  2. ABILIFY [Suspect]
     Active Substance: ARIPIPRAZOLE
     Indication: DELUSIONAL DISORDER, UNSPECIFIED TYPE
     Dosage: 6 MG, QD
     Route: 064
     Dates: start: 20081208, end: 20081228
  3. ALOSENN [Concomitant]
     Active Substance: SENNA LEAF
     Indication: CONSTIPATION
     Dosage: 1 G, QD
     Route: 064
     Dates: start: 20081202
  4. SENNA [Concomitant]
     Active Substance: SENNA LEAF\SENNOSIDES\SENNOSIDES A AND B
     Indication: PRODUCT USED FOR UNKNOWN INDICATION
     Dosage: GRANULES
     Route: 064
     Dates: start: 20081202
  5. RITODRINE [Concomitant]
     Active Substance: RITODRINE
     Dosage: 20 MG, QD
     Route: 064
     Dates: start: 20090210, end: 20090214
  6. ABILIFY [Suspect]
     Active Substance: ARIPIPRAZOLE
     Dosage: 3 MG, QD
     Route: 064
     Dates: start: 20081229

REACTIONS (2)
  - Premature baby [Unknown]
  - Foetal exposure during pregnancy [Unknown]

NARRATIVE: CASE EVENT DATE: 20090320
